FAERS Safety Report 8557284-8 (Version None)
Quarter: 2012Q3

REPORT INFORMATION
  Report Type: 
  Country: None (occurrence: None)
  Receive Date: 20120801
  Receipt Date: 20120717
  Transmission Date: 20120928
  Serious: No
  Sender: FDA-Public Use
  Company Number: US-009507513-2012SP034065

PATIENT

DRUGS (1)
  1. NEXPLANON [Suspect]
     Dosage: 1 DF, UNK

REACTIONS (2)
  - ACCIDENTAL EXPOSURE [None]
  - INJURY [None]
